FAERS Safety Report 20761501 (Version 1)
Quarter: 2022Q2

REPORT INFORMATION
  Report Type: Spontaneous
  Country: US (occurrence: US)
  Receive Date: 20220428
  Receipt Date: 20220428
  Transmission Date: 20220721
  Serious: Yes (Death, Other)
  Sender: FDA-Public Use
  Company Number: US-Shilpa Medicare Limited-SML-US-2022-00420

PATIENT
  Age: 68 Year
  Sex: Female

DRUGS (2)
  1. DOCETAXEL [Suspect]
     Active Substance: DOCETAXEL
     Indication: Inflammatory myofibroblastic tumour
  2. GEMCITABINE [Suspect]
     Active Substance: GEMCITABINE
     Indication: Inflammatory myofibroblastic tumour

REACTIONS (2)
  - Condition aggravated [Fatal]
  - Drug ineffective [Unknown]
